FAERS Safety Report 9384803 (Version 1)
Quarter: 2013Q3

REPORT INFORMATION
  Report Type: Spontaneous
  Country: US (occurrence: US)
  Receive Date: 20130705
  Receipt Date: 20130705
  Transmission Date: 20140515
  Serious: No
  Sender: FDA-Public Use
  Company Number: US-PFIZER INC-2013199330

PATIENT
  Sex: Female

DRUGS (1)
  1. LYRICA [Suspect]
     Indication: SPINAL PAIN
     Dosage: UNK

REACTIONS (4)
  - Oedema peripheral [Unknown]
  - Joint swelling [Unknown]
  - Rash [Unknown]
  - Off label use [Recovered/Resolved]
